FAERS Safety Report 21637364 (Version 8)
Quarter: 2023Q1

REPORT INFORMATION
  Report Type: Spontaneous
  Country: US (occurrence: US)
  Receive Date: 20221124
  Receipt Date: 20230125
  Transmission Date: 20230418
  Serious: No
  Sender: FDA-Public Use
  Company Number: US-UNITED THERAPEUTICS-UNT-2022-028256

PATIENT
  Age: 38 Year
  Sex: Female
  Weight: 84.807 kg

DRUGS (8)
  1. REMODULIN [Suspect]
     Active Substance: TREPROSTINIL
     Indication: Pulmonary arterial hypertension
     Dosage: 0.005 ?G/KG, CONTINUING (SELF FILL CASSETTE WITH 2.4 ML. AT PUMP RATE OF 27 MCL PER HOUR)
     Route: 058
     Dates: start: 20221110
  2. REMODULIN [Suspect]
     Active Substance: TREPROSTINIL
     Dosage: 0.007 ?G/KG (SELF-FILL CASSETTE WITH 2.9 ML; PUMP RATE OF 33 MCL PER HOUR), CONTINUING
     Route: 058
     Dates: start: 2022
  3. REMODULIN [Suspect]
     Active Substance: TREPROSTINIL
     Dosage: 0.008 ?G/KG (SELF-FILL CASSETTE WITH 2.9 ML; PUMP RATE OF 33 MCL PER HOUR), CONTINUING
     Route: 058
     Dates: start: 20221206
  4. REMODULIN [Suspect]
     Active Substance: TREPROSTINIL
     Dosage: 0.007 ?G/KG (SELF-FILL CASSETTE WITH 3 ML; PUMP RATE OF 38 MCL PER HOUR), CONTINUING
     Route: 058
     Dates: start: 202212
  5. TYVASO [Suspect]
     Active Substance: TREPROSTINIL
     Indication: Pulmonary arterial hypertension
     Dosage: 54 ?G (9 BREATHS), QID
     Dates: start: 2022
  6. TYVASO [Suspect]
     Active Substance: TREPROSTINIL
     Dosage: UNK
     Dates: start: 20221008, end: 2022
  7. SILDENAFIL [Concomitant]
     Active Substance: SILDENAFIL
     Indication: Product used for unknown indication
     Dosage: UNK
     Route: 065
  8. AMBRISENTAN [Concomitant]
     Active Substance: AMBRISENTAN
     Indication: Product used for unknown indication
     Dosage: UNK
     Route: 065

REACTIONS (9)
  - Device use error [Recovered/Resolved]
  - Infusion site haemorrhage [Unknown]
  - Infusion site pain [Not Recovered/Not Resolved]
  - Nausea [Unknown]
  - Headache [Unknown]
  - Product dose omission issue [Unknown]
  - Device maintenance issue [Unknown]
  - Infusion site reaction [Unknown]
  - Drug tolerance decreased [Unknown]

NARRATIVE: CASE EVENT DATE: 20221101
